FAERS Safety Report 8824800 (Version 1)
Quarter: 2012Q4

REPORT INFORMATION
  Report Type: 
  Country: US (occurrence: US)
  Receive Date: 20121004
  Receipt Date: 20121004
  Transmission Date: 20130627
  Serious: Yes (Hospitalization, Other)
  Sender: FDA-Public Use
  Company Number: US-ELI_LILLY_AND_COMPANY-US201210000209

PATIENT
  Age: 65 Year
  Sex: Male

DRUGS (3)
  1. AXIRON [Suspect]
     Indication: ANDROGEN DEFICIENCY
     Dosage: 60 mg, qd
  2. WARFARIN [Interacting]
     Indication: ANTICOAGULANT THERAPY
  3. COUMADIN [Interacting]
     Indication: ANTICOAGULANT THERAPY

REACTIONS (3)
  - Pulmonary embolism [Unknown]
  - Thrombosis [Unknown]
  - Drug interaction [Unknown]
